FAERS Safety Report 8046043-0 (Version None)
Quarter: 2012Q1

REPORT INFORMATION
  Report Type: 
  Country: None (occurrence: None)
  Receive Date: 20120113
  Receipt Date: 20120109
  Transmission Date: 20120608
  Serious: Yes (Hospitalization)
  Sender: FDA-Public Use
  Company Number: FR-BAXTER-2012BH000738

PATIENT
  Age: 3 Year
  Sex: Female
  Weight: 14 kg

DRUGS (4)
  1. THIOGUANINE [Suspect]
     Indication: T-CELL TYPE ACUTE LEUKAEMIA
     Route: 048
     Dates: start: 20111206, end: 20111226
  2. CYCLOPHOSPHAMIDE [Suspect]
     Indication: T-CELL TYPE ACUTE LEUKAEMIA
     Route: 042
     Dates: start: 20111206, end: 20111220
  3. ONDANSETRON [Suspect]
     Indication: T-CELL TYPE ACUTE LEUKAEMIA
     Route: 042
     Dates: start: 20111206, end: 20111220
  4. CYTARABINE [Suspect]
     Indication: T-CELL TYPE ACUTE LEUKAEMIA
     Route: 042
     Dates: start: 20111206, end: 20111221

REACTIONS (2)
  - VENOOCCLUSIVE LIVER DISEASE [None]
  - THROMBOCYTOPENIA [None]
